FAERS Safety Report 25375493 (Version 1)
Quarter: 2025Q2

REPORT INFORMATION
  Report Type: Spontaneous
  Country: CL (occurrence: CL)
  Receive Date: 20250529
  Receipt Date: 20250529
  Transmission Date: 20250717
  Serious: Yes (Hospitalization)
  Sender: BIOMARIN
  Company Number: CL-BIOMARINAP-CL-2025-163568

PATIENT

DRUGS (1)
  1. VIMIZIM [Suspect]
     Active Substance: ELOSULFASE ALFA
     Indication: Mucopolysaccharidosis IV
     Route: 042
     Dates: start: 20190101

REACTIONS (4)
  - Balanoposthitis [Not Recovered/Not Resolved]
  - Sleep apnoea syndrome [Unknown]
  - Snoring [Unknown]
  - Oxygen saturation decreased [Unknown]

NARRATIVE: CASE EVENT DATE: 20250121
